FAERS Safety Report 22128902 (Version 2)
Quarter: 2023Q1

REPORT INFORMATION
  Report Type: Report from Study
  Country: US (occurrence: US)
  Receive Date: 20230323
  Receipt Date: 20230324
  Transmission Date: 20230418
  Serious: No
  Sender: FDA-Public Use
  Company Number: US-002147023-NVSC2023US063515

PATIENT
  Sex: Female
  Weight: 88.9 kg

DRUGS (4)
  1. COSENTYX [Suspect]
     Active Substance: SECUKINUMAB
     Indication: Psoriasis
     Dosage: 150 MG, QMO
     Route: 058
  2. BUSPIRONE [Concomitant]
     Active Substance: BUSPIRONE HYDROCHLORIDE
     Indication: Product used for unknown indication
     Dosage: 5 MG, TID
     Route: 048
  3. SPIRONOLACTONE [Concomitant]
     Active Substance: SPIRONOLACTONE
     Indication: Product used for unknown indication
     Dosage: 100 MG, QD (AT HS (AT BED TIME))
     Route: 048
  4. TRETINOIN [Concomitant]
     Active Substance: TRETINOIN
     Indication: Psoriasis
     Dosage: 0.02 %
     Route: 065

REACTIONS (5)
  - Psoriasis [Unknown]
  - Papule [Unknown]
  - Skin plaque [Unknown]
  - Skin exfoliation [Unknown]
  - Rash pruritic [Unknown]
